FAERS Safety Report 15183302 (Version 2)
Quarter: 2019Q1

REPORT INFORMATION
  Report Type: Report from Study
  Country: FR (occurrence: FR)
  Receive Date: 20180723
  Receipt Date: 20190221
  Transmission Date: 20190417
  Serious: Yes (Other)
  Sender: FDA-Public Use
  Company Number: FR-FERRINGPH-2018FE00835

PATIENT

DRUGS (10)
  1. PLAVIX [Concomitant]
     Active Substance: CLOPIDOGREL BISULFATE
  2. SOMATULINE                         /01330101/ [Concomitant]
     Active Substance: LANREOTIDE ACETATE
     Dosage: UNK
     Dates: start: 2018, end: 201902
  3. NEBILOX [Concomitant]
     Active Substance: NEBIVOLOL HYDROCHLORIDE
  4. LOXEN L P [Concomitant]
     Active Substance: NICARDIPINE HYDROCHLORIDE
     Indication: HYPERTENSION
     Dosage: 50 MG, 2 TIMES DAILY (MORNING AND IN THE EVENING)
  5. DEGARELIX [Suspect]
     Active Substance: DEGARELIX
     Indication: HORMONE-DEPENDENT PROSTATE CANCER
     Dosage: 80 MG, MONTHLY
     Route: 065
     Dates: start: 20180312
  6. GLUCOPHAGE [Concomitant]
     Active Substance: METFORMIN HYDROCHLORIDE
     Indication: TYPE 2 DIABETES MELLITUS
  7. DEGARELIX [Suspect]
     Active Substance: DEGARELIX
     Dosage: 120 MG TWICE THE FIRST MONTH
     Route: 065
     Dates: start: 20180213, end: 20180213
  8. TAREG [Concomitant]
     Active Substance: VALSARTAN
     Indication: HYPERTENSION
  9. MOPRAL                             /00661201/ [Concomitant]
     Active Substance: OMEPRAZOLE SODIUM
  10. INSPRA [Concomitant]
     Active Substance: EPLERENONE

REACTIONS (22)
  - Injection site erythema [Recovering/Resolving]
  - Injection site mass [Recovered/Resolved]
  - Injection site mass [Not Recovered/Not Resolved]
  - Extrasystoles [Not Recovered/Not Resolved]
  - Injection site erythema [Unknown]
  - Myalgia [Unknown]
  - Hot flush [Not Recovered/Not Resolved]
  - Injection site mass [Not Recovered/Not Resolved]
  - Injection site ulcer [Not Recovered/Not Resolved]
  - Injection site inflammation [Recovering/Resolving]
  - Blood pressure increased [Not Recovered/Not Resolved]
  - Injection site inflammation [Recovered/Resolved]
  - Injection site inflammation [Not Recovered/Not Resolved]
  - Herpes zoster [Not Recovered/Not Resolved]
  - Amnesia [Not Recovered/Not Resolved]
  - Blood glucose increased [Not Recovered/Not Resolved]
  - Blood pressure systolic increased [Not Recovered/Not Resolved]
  - Injection site pain [Not Recovered/Not Resolved]
  - Injection site erythema [Not Recovered/Not Resolved]
  - Injection site rash [Not Recovered/Not Resolved]
  - Urinary tract infection [Not Recovered/Not Resolved]
  - Injection site pain [Recovering/Resolving]

NARRATIVE: CASE EVENT DATE: 201802
